FAERS Safety Report 5797958-5 (Version None)
Quarter: 2008Q3

REPORT INFORMATION
  Report Type: 
  Country: None (occurrence: None)
  Receive Date: 20080702
  Receipt Date: 20080620
  Transmission Date: 20090109
  Serious: Yes (Hospitalization, Other)
  Sender: FDA-Public Use
  Company Number: US-AMGEN-KDL287466

PATIENT
  Sex: Male
  Weight: 51.3 kg

DRUGS (5)
  1. EPOGEN [Suspect]
     Indication: DIALYSIS
     Route: 042
     Dates: start: 20050501
  2. LANTHANUM CARBONATE [Concomitant]
     Dates: start: 20080523
  3. METOPROLOL SUCCINATE [Concomitant]
     Dates: start: 20080601
  4. HEPARIN [Concomitant]
     Dates: start: 20050501
  5. ZIDOVUDINE [Concomitant]
     Dates: start: 20080501

REACTIONS (8)
  - EMPYEMA [None]
  - INTERSTITIAL LUNG DISEASE [None]
  - MALNUTRITION [None]
  - MICROCYTIC ANAEMIA [None]
  - PERICARDIAL EFFUSION [None]
  - PLATELET COUNT DECREASED [None]
  - PLEURAL EFFUSION [None]
  - STAPHYLOCOCCAL BACTERAEMIA [None]
